FAERS Safety Report 18586124 (Version 2)
Quarter: 2021Q1

REPORT INFORMATION
  Report Type: Spontaneous
  Country: JP (occurrence: JP)
  Receive Date: 20201207
  Receipt Date: 20210104
  Transmission Date: 20210419
  Serious: Yes (Other)
  Sender: FDA-Public Use
  Company Number: JP-PFIZER INC-2020477567

PATIENT
  Age: 59 Year
  Sex: Female

DRUGS (7)
  1. REVATIO [Suspect]
     Active Substance: SILDENAFIL CITRATE
     Dosage: 20 MG, 2X/DAY
     Route: 048
     Dates: start: 20200812
  2. REVATIO [Suspect]
     Active Substance: SILDENAFIL CITRATE
     Dosage: 20 MG, 3X/DAY
     Route: 048
     Dates: start: 20201014
  3. REVATIO [Suspect]
     Active Substance: SILDENAFIL CITRATE
     Dosage: 20 MG IN THE MORNING AND BEFORE GOING TO BED, 10 MG IN THE EVENING
     Route: 048
     Dates: start: 20201111
  4. REVATIO [Suspect]
     Active Substance: SILDENAFIL CITRATE
     Dosage: 10 MG (0.5 TABLETS) IN THE MORNING, 20 MG(1 TABLET) IN THE EVENING
     Route: 048
     Dates: start: 20200708
  5. REVATIO [Suspect]
     Active Substance: SILDENAFIL CITRATE
     Dosage: 10 MG(0.5 TABLETS), 2X/DAY
     Route: 048
     Dates: start: 20200610
  6. OPSUMIT [Concomitant]
     Active Substance: MACITENTAN
  7. REVATIO [Suspect]
     Active Substance: SILDENAFIL CITRATE
     Indication: PULMONARY HYPERTENSION
     Dosage: 10 MG(0.5 TABLETS), 1X/DAY
     Route: 048
     Dates: start: 20200513

REACTIONS (4)
  - Visual acuity reduced [Not Recovered/Not Resolved]
  - Off label use [Unknown]
  - Product use issue [Unknown]
  - Cataract [Not Recovered/Not Resolved]

NARRATIVE: CASE EVENT DATE: 2020
